FAERS Safety Report 19129959 (Version 1)
Quarter: 2021Q2

REPORT INFORMATION
  Report Type: Spontaneous
  Country: US (occurrence: US)
  Receive Date: 20210413
  Receipt Date: 20210413
  Transmission Date: 20210717
  Serious: Yes (Life-Threatening)
  Sender: FDA-Public Use
  Company Number: US-MELINTA THERAPEUTICS, LLC-US-MLNT-21-00037

PATIENT
  Age: 26 Year
  Sex: Male

DRUGS (7)
  1. RITUXIMAB. [Suspect]
     Active Substance: RITUXIMAB
     Indication: CUTANEOUS CALCIFICATION
     Dosage: NOT PROVIDED.
  2. IMMUNOGLOBULIN (IVIG) [Suspect]
     Active Substance: HUMAN IMMUNOGLOBULIN G
     Indication: CUTANEOUS CALCIFICATION
     Dosage: NOT PROVIDED.
     Route: 042
  3. MINOCYCLINE [Suspect]
     Active Substance: MINOCYCLINE HYDROCHLORIDE
     Indication: CUTANEOUS CALCIFICATION
     Dosage: NOT PROVIDED.
  4. MYCOPHENOLATE MOFETIL. [Suspect]
     Active Substance: MYCOPHENOLATE MOFETIL
     Indication: CUTANEOUS CALCIFICATION
     Dosage: NOT PROVIDED.
  5. COLCHICINE. [Suspect]
     Active Substance: COLCHICINE
     Indication: CUTANEOUS CALCIFICATION
     Dosage: NOT PROVIDED.
  6. BISPHOSPHONATES [Suspect]
     Active Substance: UNSPECIFIED INGREDIENT
     Indication: CUTANEOUS CALCIFICATION
     Dosage: NOT PROVIDED.
  7. HYDROXYCHLOROQUINE [Suspect]
     Active Substance: HYDROXYCHLOROQUINE
     Indication: CUTANEOUS CALCIFICATION
     Dosage: NOT PROVIDED.

REACTIONS (6)
  - Dysphagia [Unknown]
  - Obstructive airways disorder [Unknown]
  - Off label use [Unknown]
  - Staphylococcal infection [Unknown]
  - Drug ineffective for unapproved indication [Unknown]
  - Orthopnoea [Unknown]
